FAERS Safety Report 5156124-7 (Version None)
Quarter: 2006Q4

REPORT INFORMATION
  Report Type: 
  Country: None (occurrence: None)
  Receive Date: 20061122
  Receipt Date: 20061110
  Transmission Date: 20070319
  Serious: Yes (Hospitalization)
  Sender: FDA-Public Use
  Company Number: 2006GB02039

PATIENT
  Age: 54 Year
  Sex: Female

DRUGS (2)
  1. LIDOCAINE [Suspect]
     Indication: TENDONITIS
     Route: 065
  2. TRASYLOL [Suspect]
     Indication: TENDONITIS
     Route: 065

REACTIONS (5)
  - ANAPHYLACTIC REACTION [None]
  - DIZZINESS [None]
  - INJECTION SITE ERYTHEMA [None]
  - NAUSEA [None]
  - PRURITUS [None]
